FAERS Safety Report 8274299-8 (Version None)
Quarter: 2012Q2

REPORT INFORMATION
  Report Type: 
  Country: None (occurrence: None)
  Receive Date: 20120411
  Receipt Date: 20120404
  Transmission Date: 20120825
  Serious: Yes (Hospitalization)
  Sender: FDA-Public Use
  Company Number: US-VERTEX PHARMACEUTICALS INC.-AE-2012-004221

PATIENT
  Sex: Male

DRUGS (3)
  1. RIBAVIRIN [Concomitant]
     Indication: HEPATITIS C
     Dates: start: 20120213
  2. PEGASYS [Concomitant]
     Indication: HEPATITIS C
     Route: 058
     Dates: start: 20120213
  3. INCIVEK [Suspect]
     Indication: HEPATITIS C
     Route: 048
     Dates: start: 20120213

REACTIONS (7)
  - PNEUMONIA [None]
  - OROPHARYNGEAL PAIN [None]
  - PYREXIA [None]
  - ORAL CANDIDIASIS [None]
  - NAUSEA [None]
  - ANAEMIA [None]
  - PLATELET COUNT DECREASED [None]
